FAERS Safety Report 6148374-8 (Version None)
Quarter: 2009Q2

REPORT INFORMATION
  Report Type: 
  Country: None (occurrence: None)
  Receive Date: 20090408
  Receipt Date: 20090327
  Transmission Date: 20091009
  Serious: Yes (Other)
  Sender: FDA-Public Use
  Company Number: BR-JNJFOC-20090400238

PATIENT

DRUGS (4)
  1. INFLIXIMAB [Suspect]
     Indication: JUVENILE ARTHRITIS
     Dosage: 2 INFUSIONS ON UNSPECIFIED DATES
     Route: 042
  2. CORTICOSTEROIDS [Concomitant]
     Indication: PREMEDICATION
     Route: 042
  3. ANTIHISTAMINES [Concomitant]
     Indication: PREMEDICATION
  4. ACETAMINOPHEN [Concomitant]
     Indication: PREMEDICATION

REACTIONS (4)
  - ANGIOEDEMA [None]
  - CHEST PAIN [None]
  - FLUSHING [None]
  - INFUSION RELATED REACTION [None]
